FAERS Safety Report 20152949 (Version 1)
Quarter: 2021Q4

REPORT INFORMATION
  Report Type: Spontaneous
  Country: US (occurrence: None)
  Receive Date: 20211206
  Receipt Date: 20211206
  Transmission Date: 20220303
  Serious: Yes (Disabling)
  Sender: FDA-Public Use
  Company Number: None

PATIENT
  Age: 61 Year
  Sex: Male
  Weight: 72 kg

DRUGS (1)
  1. FINASTERIDE [Suspect]
     Active Substance: FINASTERIDE
     Indication: Benign prostatic hyperplasia
     Dosage: FREQUENCY : TWICE A WEEK;?
     Route: 048
     Dates: start: 20180515, end: 20200106

REACTIONS (34)
  - Fatigue [None]
  - Dry skin [None]
  - Pruritus [None]
  - Petechiae [None]
  - Musculoskeletal stiffness [None]
  - Arthralgia [None]
  - Chills [None]
  - Muscle spasms [None]
  - Muscle twitching [None]
  - Neck pain [None]
  - Hypoaesthesia [None]
  - Hot flush [None]
  - Anxiety [None]
  - Panic attack [None]
  - Headache [None]
  - Swelling [None]
  - Muscle tightness [None]
  - Muscle tension dysphonia [None]
  - Muscular weakness [None]
  - Paralysis [None]
  - Libido decreased [None]
  - Orgasmic sensation decreased [None]
  - Semen volume decreased [None]
  - Organic erectile dysfunction [None]
  - Thinking abnormal [None]
  - Aphasia [None]
  - Confusional state [None]
  - Memory impairment [None]
  - Toothache [None]
  - Gingival recession [None]
  - Saliva altered [None]
  - Mood swings [None]
  - Tinnitus [None]
  - Rash [None]

NARRATIVE: CASE EVENT DATE: 20190627
